FAERS Safety Report 15218586 (Version 2)
Quarter: 2018Q3

REPORT INFORMATION
  Report Type: Report from Study
  Country: None (occurrence: FR)
  Receive Date: 20180730
  Receipt Date: 20180807
  Transmission Date: 20181010
  Serious: Yes (Other)
  Sender: FDA-Public Use
  Company Number: FR-ABBVIE-18S-056-2427644-00

PATIENT
  Age: 37 Year
  Sex: Female

DRUGS (4)
  1. TRUVADA [Suspect]
     Active Substance: EMTRICITABINE\TENOFOVIR DISOPROXIL FUMARATE
     Indication: PRODUCT USED FOR UNKNOWN INDICATION
     Dosage: 1 TAB/CAPS
     Route: 048
     Dates: start: 20171010
  2. PREZISTA [Suspect]
     Active Substance: DARUNAVIR ETHANOLATE
     Indication: PRODUCT USED FOR UNKNOWN INDICATION
     Route: 048
     Dates: start: 20171102
  3. TIVICAY [Suspect]
     Active Substance: DOLUTEGRAVIR SODIUM
     Indication: PRODUCT USED FOR UNKNOWN INDICATION
     Route: 048
     Dates: start: 20171010, end: 20171102
  4. NORVIR [Suspect]
     Active Substance: RITONAVIR
     Indication: PRODUCT USED FOR UNKNOWN INDICATION
     Route: 048
     Dates: start: 20171102

REACTIONS (13)
  - Endometritis decidual [Unknown]
  - Dyspnoea [Unknown]
  - Exposure during pregnancy [Unknown]
  - Coagulopathy [Unknown]
  - Goitre [Unknown]
  - General physical health deterioration [Unknown]
  - Hepatocellular injury [Recovered/Resolved]
  - Gastric disorder [Unknown]
  - Hypokalaemia [Unknown]
  - Hyperthyroidism [Unknown]
  - Potassium wasting nephropathy [Unknown]
  - Tubulointerstitial nephritis [Unknown]
  - Total bile acids increased [Unknown]

NARRATIVE: CASE EVENT DATE: 2017
